FAERS Safety Report 15552784 (Version 1)
Quarter: 2018Q4

REPORT INFORMATION
  Report Type: Spontaneous
  Country: FR (occurrence: FR)
  Receive Date: 20181025
  Receipt Date: 20181025
  Transmission Date: 20190205
  Serious: Yes (Hospitalization)
  Sender: FDA-Public Use
  Company Number: FR-ROCHE-2205567

PATIENT
  Age: 55 Year
  Sex: Female
  Weight: 52 kg

DRUGS (6)
  1. INNOVAIR [Concomitant]
     Active Substance: BECLOMETHASONE DIPROPIONATE\FORMOTEROL
     Route: 065
  2. DIAZEPAM. [Suspect]
     Active Substance: DIAZEPAM
     Indication: SUICIDE ATTEMPT
     Route: 048
     Dates: start: 20180729, end: 20180729
  3. MIRTAZAPINE. [Suspect]
     Active Substance: MIRTAZAPINE
     Indication: SUICIDE ATTEMPT
     Route: 048
     Dates: start: 20180729, end: 20180729
  4. IMOVANE [Concomitant]
     Active Substance: ZOPICLONE
     Route: 065
  5. FLECAINIDE ACETATE. [Suspect]
     Active Substance: FLECAINIDE ACETATE
     Indication: SUICIDE ATTEMPT
     Route: 048
     Dates: start: 20180729, end: 20180729
  6. VENTOLINE [Concomitant]
     Active Substance: ALBUTEROL
     Route: 065

REACTIONS (3)
  - Cardiogenic shock [Recovered/Resolved]
  - Vomiting [Recovered/Resolved]
  - Coma [Recovered/Resolved]

NARRATIVE: CASE EVENT DATE: 20180729
